FAERS Safety Report 22032729 (Version 2)
Quarter: 2023Q1

REPORT INFORMATION
  Report Type: Report from Study
  Country: US (occurrence: US)
  Receive Date: 20230224
  Receipt Date: 20230327
  Transmission Date: 20230417
  Serious: Yes (Other)
  Sender: FDA-Public Use
  Company Number: US-INSMED, INC.-2023-00345-US

PATIENT
  Age: 52 Year
  Sex: Male

DRUGS (1)
  1. ARIKAYCE [Suspect]
     Active Substance: AMIKACIN
     Indication: Mycobacterial infection
     Dosage: 590 MILLIGRAM, QD
     Route: 055
     Dates: end: 20230128

REACTIONS (12)
  - Lung disorder [Unknown]
  - Asthma [Not Recovered/Not Resolved]
  - Condition aggravated [Unknown]
  - Secretion discharge [Unknown]
  - Dyspnoea exertional [Not Recovered/Not Resolved]
  - Sputum increased [Unknown]
  - Headache [Unknown]
  - Adverse drug reaction [Not Recovered/Not Resolved]
  - Cough [Unknown]
  - Malaise [Not Recovered/Not Resolved]
  - Nausea [Unknown]
  - Diarrhoea [Recovered/Resolved]

NARRATIVE: CASE EVENT DATE: 20230128
